FAERS Safety Report 18733054 (Version 3)
Quarter: 2022Q1

REPORT INFORMATION
  Report Type: Report from Study
  Country: FR (occurrence: FR)
  Receive Date: 20210112
  Receipt Date: 20220315
  Transmission Date: 20220423
  Serious: Yes (Other)
  Sender: FDA-Public Use
  Company Number: FR-ABBVIE-20K-056-3658649-00

PATIENT
  Age: 38 Year
  Sex: Male

DRUGS (9)
  1. CARBIDOPA\LEVODOPA [Suspect]
     Active Substance: CARBIDOPA\LEVODOPA
     Indication: Parkinson^s disease
     Route: 050
     Dates: start: 202011, end: 2020
  2. CARBIDOPA\LEVODOPA [Suspect]
     Active Substance: CARBIDOPA\LEVODOPA
     Dosage: CONTINUOUS FLOW 4ML/H 12H/DAY
     Route: 050
     Dates: start: 20201218
  3. CARBIDOPA\LEVODOPA [Suspect]
     Active Substance: CARBIDOPA\LEVODOPA
     Dosage: DECREASE OF THE FLOW BY 0.5ML EVERY 2 DAYS IF DYSKINESIA PERSISTED
     Route: 050
     Dates: start: 20220309
  4. BENSERAZIDE HYDROCHLORIDE\LEVODOPA [Suspect]
     Active Substance: BENSERAZIDE HYDROCHLORIDE\LEVODOPA
     Indication: Product used for unknown indication
     Route: 065
     Dates: start: 202102
  5. CLOZAPINE [Concomitant]
     Active Substance: CLOZAPINE
     Indication: Hallucination
     Route: 048
     Dates: start: 2018
  6. CYANOCOBALAMIN [Concomitant]
     Active Substance: CYANOCOBALAMIN
     Indication: Vitamin B12 deficiency
     Route: 048
     Dates: start: 2020
  7. ALLOPURINOL [Concomitant]
     Active Substance: ALLOPURINOL
     Indication: Product used for unknown indication
     Route: 048
  8. LIORESAL [Concomitant]
     Active Substance: BACLOFEN
     Indication: Musculoskeletal stiffness
     Route: 048
     Dates: start: 2015
  9. NEBIVOLOL [Concomitant]
     Active Substance: NEBIVOLOL
     Indication: Product used for unknown indication
     Route: 048
     Dates: start: 2015

REACTIONS (28)
  - Suffocation feeling [Unknown]
  - Weight decreased [Recovered/Resolved]
  - Hypophagia [Not Recovered/Not Resolved]
  - Poor quality sleep [Unknown]
  - Emetophobia [Not Recovered/Not Resolved]
  - Stress [Unknown]
  - Mobility decreased [Not Recovered/Not Resolved]
  - Posture abnormal [Not Recovered/Not Resolved]
  - Haematoma [Not Recovered/Not Resolved]
  - Pain in extremity [Unknown]
  - Arthralgia [Unknown]
  - Burning sensation [Unknown]
  - Fall [Not Recovered/Not Resolved]
  - Nightmare [Unknown]
  - Fatigue [Unknown]
  - Decreased appetite [Not Recovered/Not Resolved]
  - Salivary hypersecretion [Unknown]
  - Hyperhidrosis [Unknown]
  - Paraesthesia [Unknown]
  - Paraesthesia [Unknown]
  - Stoma site inflammation [Unknown]
  - On and off phenomenon [Recovered/Resolved]
  - Nausea [Not Recovered/Not Resolved]
  - Vomiting [Not Recovered/Not Resolved]
  - Dyskinesia [Not Recovered/Not Resolved]
  - Freezing phenomenon [Recovered/Resolved]
  - Therapeutic product effect incomplete [Unknown]
  - On and off phenomenon [Recovered/Resolved]

NARRATIVE: CASE EVENT DATE: 20201101
